FAERS Safety Report 25422405 (Version 1)
Quarter: 2025Q2

REPORT INFORMATION
  Report Type: Spontaneous
  Country: US (occurrence: US)
  Receive Date: 20250611
  Receipt Date: 20250611
  Transmission Date: 20250717
  Serious: No
  Sender: BOEHRINGER INGELHEIM
  Company Number: US-BoehringerIngelheim-2025-BI-076049

PATIENT
  Age: 64 Year
  Sex: Male

DRUGS (6)
  1. JARDIANCE [Suspect]
     Active Substance: EMPAGLIFLOZIN
     Indication: Product used for unknown indication
  2. ORGOVYX [Suspect]
     Active Substance: RELUGOLIX
     Indication: Prostate cancer
     Dosage: SINGLE DOSE
     Dates: start: 20250211, end: 20250211
  3. ORGOVYX [Suspect]
     Active Substance: RELUGOLIX
     Dates: start: 20250212
  4. ABIRATERONE ACETATE [Concomitant]
     Active Substance: ABIRATERONE ACETATE
     Indication: Prostate cancer
  5. PREDNISONE [Concomitant]
     Active Substance: PREDNISONE
     Indication: Prostate cancer
  6. CALCIUM\VITAMIN D [Concomitant]
     Active Substance: CALCIUM\VITAMIN D
     Indication: Product used for unknown indication

REACTIONS (9)
  - Insomnia [Unknown]
  - Feeling of body temperature change [Unknown]
  - Glomerular filtration rate decreased [Unknown]
  - Pruritus [Unknown]
  - Blood cholesterol increased [Unknown]
  - Night sweats [Unknown]
  - Fatigue [Unknown]
  - Constipation [Unknown]
  - Hot flush [Unknown]

NARRATIVE: CASE EVENT DATE: 20250201
